FAERS Safety Report 7954406-4 (Version None)
Quarter: 2011Q4

REPORT INFORMATION
  Report Type: 
  Country: None (occurrence: None)
  Receive Date: 20111115
  Receipt Date: 20111108
  Transmission Date: 20120403
  Serious: Yes (Disabling)
  Sender: FDA-Public Use
  Company Number: 2011030266

PATIENT
  Age: 46 Year
  Sex: Female

DRUGS (2)
  1. PRIVIGEN [Suspect]
     Dates: start: 20110712
  2. PRIVIGEN [Suspect]
     Dates: start: 20110805

REACTIONS (2)
  - INJURY ASSOCIATED WITH DEVICE [None]
  - HEPATITIS C [None]
